FAERS Safety Report 7999324-0 (Version None)
Quarter: 2011Q4

REPORT INFORMATION
  Report Type: 
  Country: None (occurrence: None)
  Receive Date: 20111221
  Receipt Date: 20111213
  Transmission Date: 20120403
  Serious: Yes (Life-Threatening, Hospitalization)
  Sender: FDA-Public Use
  Company Number: NL-MEDIMMUNE-MEDI-0013964

PATIENT
  Sex: Male
  Weight: 4.645 kg

DRUGS (3)
  1. SYNAGIS [Suspect]
  2. SYNAGIS [Suspect]
  3. SYNAGIS [Suspect]
     Indication: TRACHEAL STENOSIS
     Route: 030
     Dates: start: 20110101, end: 20110101

REACTIONS (2)
  - RESPIRATORY TRACT INFECTION [None]
  - RESPIRATORY TRACT INFECTION BACTERIAL [None]
